FAERS Safety Report 7751182-5 (Version None)
Quarter: 2011Q3

REPORT INFORMATION
  Report Type: 
  Country: None (occurrence: None)
  Receive Date: 20110914
  Receipt Date: 20071008
  Transmission Date: 20111222
  Serious: Yes (Death)
  Sender: FDA-Public Use
  Company Number: PHHY2007NL03765

PATIENT
  Sex: Male

DRUGS (4)
  1. SANDOSTATIN LAR [Suspect]
     Indication: CARCINOID TUMOUR
     Dosage: 20 MG (ONCE PER 4 WEEKS)
     Route: 030
     Dates: start: 20060218, end: 20060623
  2. SANDOSTATIN LAR [Suspect]
     Dosage: 30 MG (ONCE PER 4 WEEKS)
     Route: 030
     Dates: start: 20070908
  3. SANDOSTATIN LAR [Suspect]
     Dosage: 20 MG (ONCE PER 4 WEEKS)
     Route: 030
     Dates: start: 20060821
  4. SANDOSTATIN LAR [Suspect]
     Dosage: 20 MG (ONCE PER 4 WEEKS)
     Route: 030
     Dates: start: 20061204

REACTIONS (1)
  - DEATH [None]
